FAERS Safety Report 5463031-9 (Version None)
Quarter: 2007Q3

REPORT INFORMATION
  Report Type: 
  Country: None (occurrence: None)
  Receive Date: 20070920
  Receipt Date: 20070911
  Transmission Date: 20080115
  Serious: Yes (Other)
  Sender: FDA-Public Use
  Company Number: US-GENENTECH-247654

PATIENT
  Sex: Female
  Weight: 56.689 kg

DRUGS (7)
  1. RITUXAN [Suspect]
     Indication: DERMATOMYOSITIS
     Dosage: UNK, UNKNOWN
     Route: 065
     Dates: start: 20070801
  2. RITUXAN [Suspect]
     Indication: MUSCULAR DYSTROPHY
  3. ADVIL LIQUI-GELS [Concomitant]
     Indication: DRUG USE FOR UNKNOWN INDICATION
     Dosage: UNK, UNKNOWN
     Route: 065
  4. PREDNISONE [Concomitant]
     Indication: DRUG USE FOR UNKNOWN INDICATION
     Dosage: 5 MG, QD
     Route: 065
  5. LEVOXYL [Concomitant]
     Indication: DRUG USE FOR UNKNOWN INDICATION
     Dosage: 1 MG, QD
  6. ACTONEL [Concomitant]
     Indication: DRUG USE FOR UNKNOWN INDICATION
     Dosage: UNK, 1/WEEK
     Route: 065
  7. FAMVIR [Concomitant]
     Indication: DRUG USE FOR UNKNOWN INDICATION
     Dosage: 125 MG, UNKNOWN
     Route: 065

REACTIONS (1)
  - SKIN CANCER [None]
